FAERS Safety Report 6572216-X (Version None)
Quarter: 2010Q1

REPORT INFORMATION
  Report Type: 
  Country: None (occurrence: None)
  Receive Date: 20100205
  Receipt Date: 20100129
  Transmission Date: 20100710
  Serious: Yes (Hospitalization)
  Sender: FDA-Public Use
  Company Number: PHHO2010CO01730

PATIENT
  Sex: Male
  Weight: 70 kg

DRUGS (2)
  1. CERTICAN [Suspect]
     Indication: LIVER TRANSPLANT
     Dosage: 3 MG, BID
     Route: 048
     Dates: start: 20100114, end: 20100128
  2. PREDNISOLONE [Concomitant]
     Dosage: 15 MG, QD
     Route: 048
     Dates: start: 20091112

REACTIONS (3)
  - DRUG INEFFECTIVE [None]
  - HEPATIC ENZYME INCREASED [None]
  - TRANSPLANT REJECTION [None]
